FAERS Safety Report 9011218 (Version 1)
Quarter: 2013Q1

REPORT INFORMATION
  Report Type: Spontaneous
  Country: US (occurrence: US)
  Receive Date: 20130109
  Receipt Date: 20130109
  Transmission Date: 20140127
  Serious: Yes (Other)
  Sender: FDA-Public Use
  Company Number: US-WATSON-2012-23115

PATIENT
  Sex: Female
  Weight: 72 kg

DRUGS (2)
  1. GELNIQUE [Suspect]
     Indication: URINARY INCONTINENCE
     Dosage: ONE SACHET DAILY
     Route: 061
  2. GELNIQUE [Suspect]
     Dosage: ONE SACHET DAILY
     Route: 061
     Dates: start: 2012

REACTIONS (3)
  - Narrow anterior chamber angle [Recovered/Resolved]
  - Hepatic enzyme increased [Not Recovered/Not Resolved]
  - Open angle glaucoma [None]
